FAERS Safety Report 18197899 (Version 1)
Quarter: 2020Q3

REPORT INFORMATION
  Report Type: Report from Study
  Country: EG (occurrence: EG)
  Receive Date: 20200826
  Receipt Date: 20200826
  Transmission Date: 20201103
  Serious: Yes (Congenital Anomaly, Other)
  Sender: FDA-Public Use
  Company Number: NVSC2020EG233774

PATIENT
  Age: 10 Month
  Sex: Female

DRUGS (1)
  1. TASIGNA [Suspect]
     Active Substance: NILOTINIB
     Indication: FOETAL EXPOSURE DURING PREGNANCY
     Dosage: MATERNAL DOSE:800 MG/ DAY, MATERNAL EXPOSURE DURING PREGNANCY
     Route: 064

REACTIONS (6)
  - Fall [Unknown]
  - Congenital renal disorder [Unknown]
  - Double ureter [Unknown]
  - Foetal exposure during pregnancy [Unknown]
  - Renal impairment [Unknown]
  - Epistaxis [Unknown]
